FAERS Safety Report 10768867 (Version 1)
Quarter: 2015Q1

REPORT INFORMATION
  Report Type: Report from Study
  Country: US (occurrence: US)
  Receive Date: 20150206
  Receipt Date: 20150206
  Transmission Date: 20150721
  Serious: Yes (Other)
  Sender: FDA-Public Use
  Company Number: US-BAYER-2014-022026

PATIENT
  Age: 45 Year
  Sex: Female

DRUGS (9)
  1. BETASERON [Suspect]
     Active Substance: INTERFERON BETA-1B
     Indication: MULTIPLE SCLEROSIS
     Dosage: 2 MIU, QOD
     Route: 058
     Dates: start: 20140131
  2. HYDROCODONE [Concomitant]
     Active Substance: HYDROCODONE
  3. BETASERON [Suspect]
     Active Substance: INTERFERON BETA-1B
     Indication: MULTIPLE SCLEROSIS
     Dosage: 8 MIU, QOD
     Route: 058
  4. MELOXICAM. [Concomitant]
     Active Substance: MELOXICAM
  5. CYCLOBENZAPRINE [Concomitant]
     Active Substance: CYCLOBENZAPRINE
  6. BETASERON [Suspect]
     Active Substance: INTERFERON BETA-1B
     Indication: MULTIPLE SCLEROSIS
     Dosage: 4 MIU, QOD
     Route: 058
  7. BENADRYL [Concomitant]
     Active Substance: DIPHENHYDRAMINE HYDROCHLORIDE
     Indication: PREMEDICATION
     Dosage: UNK
     Route: 048
     Dates: start: 201401
  8. LORTAB [Concomitant]
     Active Substance: ACETAMINOPHEN\HYDROCODONE BITARTRATE
     Indication: PREMEDICATION
  9. BETASERON [Suspect]
     Active Substance: INTERFERON BETA-1B
     Indication: MULTIPLE SCLEROSIS
     Dosage: 8 MIU, QOD
     Route: 058

REACTIONS (15)
  - Optic ischaemic neuropathy [Recovering/Resolving]
  - Heart rate increased [Recovered/Resolved]
  - Dyspnoea [Recovered/Resolved]
  - Headache [Not Recovered/Not Resolved]
  - Vision blurred [Recovering/Resolving]
  - Blindness unilateral [Recovering/Resolving]
  - Diplopia [Recovering/Resolving]
  - Heart rate increased [Recovered/Resolved]
  - Extrasystoles [Recovered/Resolved]
  - Contusion [Recovered/Resolved]
  - Hypertension [Recovered/Resolved]
  - Blindness unilateral [Recovered/Resolved]
  - Colour blindness acquired [Recovering/Resolving]
  - Eye colour change [Recovering/Resolving]
  - Urticaria [Recovered/Resolved]

NARRATIVE: CASE EVENT DATE: 2014
